FAERS Safety Report 4898540-4 (Version None)
Quarter: 2006Q1

REPORT INFORMATION
  Report Type: 
  Country: None (occurrence: None)
  Receive Date: 20060130
  Receipt Date: 20060119
  Transmission Date: 20060701
  Serious: Yes (Other)
  Sender: FDA-Public Use
  Company Number: 2006010113

PATIENT
  Age: 73 Year
  Sex: Female
  Weight: 65.7716 kg

DRUGS (5)
  1. GLUCOTROL XL [Suspect]
     Indication: DIABETES MELLITUS
     Dosage: 20 MG (10 MG, 2 IN 1 D)
  2. LISINOPRIL [Concomitant]
  3. HYDROCHLOROTHIAZIDE (HYDROCHOROTHIAZIDE) [Concomitant]
  4. NORVASC [Concomitant]
  5. ASPIRIN [Concomitant]

REACTIONS (3)
  - BREAST CANCER [None]
  - FALL [None]
  - UPPER LIMB FRACTURE [None]
